FAERS Safety Report 6582806-6 (Version None)
Quarter: 2010Q1

REPORT INFORMATION
  Report Type: 
  Country: None (occurrence: None)
  Receive Date: 20100216
  Receipt Date: 20100209
  Transmission Date: 20100710
  Serious: Yes (Hospitalization)
  Sender: FDA-Public Use
  Company Number: US-BAYER-201011513BCC

PATIENT
  Sex: Female

DRUGS (1)
  1. ALKA SELTZER EFFERVESCENT FLU [Suspect]
     Indication: NASOPHARYNGITIS
     Route: 048

REACTIONS (3)
  - ASTHMA [None]
  - DRUG HYPERSENSITIVITY [None]
  - WHEEZING [None]
